FAERS Safety Report 22542063 (Version 2)
Quarter: 2023Q2

REPORT INFORMATION
  Report Type: Report from Study
  Country: ES (occurrence: ES)
  Receive Date: 20230609
  Receipt Date: 20230620
  Transmission Date: 20230721
  Serious: Yes (Hospitalization)
  Sender: FDA-Public Use
  Company Number: ES-JNJFOC-20230525095

PATIENT
  Age: 68 Year
  Sex: Female
  Weight: 41.7 kg

DRUGS (16)
  1. DARATUMUMAB [Suspect]
     Active Substance: DARATUMUMAB
     Indication: Plasma cell myeloma refractory
     Route: 058
     Dates: start: 20220516, end: 20230424
  2. DARBEPOETIN ALFA [Concomitant]
     Active Substance: DARBEPOETIN ALFA
     Indication: Anaemia
     Dosage: 300
     Route: 058
     Dates: start: 20220808
  3. CHOLESTYRAMINE [Concomitant]
     Active Substance: CHOLESTYRAMINE
     Indication: Diarrhoea
     Dosage: 4
     Route: 048
     Dates: start: 20230103
  4. OXYGEN [Concomitant]
     Active Substance: OXYGEN
     Indication: Dyspnoea
     Dosage: 3
     Route: 045
     Dates: start: 20230121
  5. ACETAMINOPHEN [Concomitant]
     Active Substance: ACETAMINOPHEN
     Indication: Febrile neutropenia
     Dosage: 1
     Route: 042
     Dates: start: 20230121
  6. FILGRASTIM [Concomitant]
     Active Substance: FILGRASTIM
     Indication: Neutropenia
     Dosage: 300
     Route: 058
     Dates: start: 20230315
  7. ASPIRIN [Concomitant]
     Active Substance: ASPIRIN
     Indication: Thrombosis prophylaxis
     Dosage: 100
     Route: 048
  8. ACYCLOVIR [Concomitant]
     Active Substance: ACYCLOVIR
     Indication: Antiviral prophylaxis
     Dosage: 800
     Route: 048
  9. CALCIUM CARBONATE\CHOLECALCIFEROL [Concomitant]
     Active Substance: CALCIUM CARBONATE\CHOLECALCIFEROL
     Indication: Prophylaxis
     Dosage: 1
     Route: 048
  10. DOXAZOSINE [DOXAZOSIN MESILATE] [Concomitant]
     Indication: Hypertension
     Dosage: 4
     Route: 048
  11. ENALAPRIL [Concomitant]
     Active Substance: ENALAPRIL
     Indication: Hypertension
     Dosage: 20
     Route: 048
  12. FOLIC ACID [Concomitant]
     Active Substance: FOLIC ACID
     Indication: Prophylaxis
     Dosage: 10
     Route: 048
  13. GABAPENTIN [Concomitant]
     Active Substance: GABAPENTIN
     Indication: Peripheral sensory neuropathy
     Dosage: 300
     Route: 048
  14. LORMETAZEPAM [Concomitant]
     Active Substance: LORMETAZEPAM
     Indication: Insomnia
     Dosage: 2
     Route: 048
  15. OMEPRAZOLE [Concomitant]
     Active Substance: OMEPRAZOLE
     Indication: Prophylaxis
     Dosage: 20
     Route: 048
  16. CYANOCOBALAMIN [Concomitant]
     Active Substance: CYANOCOBALAMIN
     Indication: Vitamin supplementation
     Dosage: 1000
     Route: 030

REACTIONS (1)
  - Gastrointestinal infection [Recovered/Resolved]

NARRATIVE: CASE EVENT DATE: 20230510
